FAERS Safety Report 9031368 (Version 5)
Quarter: 2013Q2

REPORT INFORMATION
  Report Type: Spontaneous
  Country: US (occurrence: US)
  Receive Date: 20130124
  Receipt Date: 20130412
  Transmission Date: 20140414
  Serious: Yes (Death, Hospitalization)
  Sender: FDA-Public Use
  Company Number: US-JNJFOC-20130110121

PATIENT
  Age: 88 Year
  Sex: Male
  Weight: 77 kg

DRUGS (16)
  1. XARELTO [Suspect]
     Indication: PULMONARY EMBOLISM
     Dosage: FIRST DOSE AT 17:25 PM
     Route: 048
     Dates: start: 20130106, end: 20130111
  2. XARELTO [Suspect]
     Indication: DEEP VEIN THROMBOSIS
     Dosage: FIRST DOSE AT 17:25 PM
     Route: 048
     Dates: start: 20130106, end: 20130111
  3. XARELTO [Suspect]
     Indication: CEREBROVASCULAR ACCIDENT PROPHYLAXIS
     Dosage: FIRST DOSE AT 17:25 PM
     Route: 048
     Dates: start: 20130106, end: 20130111
  4. XARELTO [Suspect]
     Indication: ATRIAL FIBRILLATION
     Dosage: FIRST DOSE AT 17:25 PM
     Route: 048
     Dates: start: 20130106, end: 20130111
  5. LESCOL XL [Concomitant]
     Indication: PRODUCT USED FOR UNKNOWN INDICATION
     Dosage: SINCE MANY YEARS
     Route: 065
  6. ZOSYN [Concomitant]
     Route: 065
  7. ULTRAM [Concomitant]
     Dosage: ALSO REPORTED AS NECESSARY
     Route: 065
  8. ZOLOFT [Concomitant]
     Route: 065
  9. PHENERGAN [Concomitant]
     Route: 065
  10. POTASSIUM CHLORIDE [Concomitant]
     Route: 065
  11. NITROSTAT [Concomitant]
     Route: 065
  12. MIDODRINE [Concomitant]
     Route: 065
  13. TOPROL XL [Concomitant]
     Route: 065
  14. NAMENDA [Concomitant]
     Route: 065
  15. LASIX [Concomitant]
     Route: 065
  16. SINEMET [Concomitant]
     Route: 065

REACTIONS (9)
  - Pulmonary oedema [Fatal]
  - Disseminated intravascular coagulation [Fatal]
  - Hepatic failure [Fatal]
  - Coagulopathy [Fatal]
  - Encephalopathy [Fatal]
  - International normalised ratio increased [Unknown]
  - Sepsis [Unknown]
  - Cholecystitis acute [Unknown]
  - Multi-organ failure [Fatal]
